FAERS Safety Report 8776218 (Version 1)
Quarter: 2012Q4

REPORT INFORMATION
  Report Type: 
  Country: US (occurrence: US)
  Receive Date: 20120910
  Receipt Date: 20120910
  Transmission Date: 20130627
  Serious: No
  Sender: FDA-Public Use
  Company Number: US-009507513-1209USA002730

PATIENT

DRUGS (1)
  1. CLARINEX [Suspect]
     Indication: DERMATITIS CONTACT
     Dosage: 5 mg, qd, prn
     Route: 048
     Dates: end: 2005

REACTIONS (1)
  - Drug ineffective [Recovered/Resolved]
